FAERS Safety Report 25140697 (Version 1)
Quarter: 2025Q1

REPORT INFORMATION
  Report Type: Spontaneous
  Country: TW (occurrence: TW)
  Receive Date: 20250331
  Receipt Date: 20250331
  Transmission Date: 20250408
  Serious: Yes (Death, Other)
  Sender: FRESENIUS KABI
  Company Number: TW-FreseniusKabi-FK202504310

PATIENT
  Age: 70 Year
  Sex: Male
  Weight: 63.3 kg

DRUGS (10)
  1. PACLITAXEL [Suspect]
     Active Substance: PACLITAXEL
     Indication: Neoplasm malignant
     Dosage: 142 MG ST?DOSAGE FORM: INJECTION?START TIME REPORTED AS 17:50?IN SALINE 0.9% 250/ML IVD 2HR RUN  136
     Dates: start: 20250313, end: 20250313
  2. PACLITAXEL [Suspect]
     Active Substance: PACLITAXEL
     Indication: Neoplasm malignant
     Dosage: 80MG/M2 (135MG) ST IVD IN SALINE 0.9% 250/ML IVD 2HR RUN 136.3ML/HR
     Route: 041
     Dates: start: 20250221
  3. Aloxi Solution for Injection(PALONOSETRON) [Concomitant]
     Indication: Antiemetic supportive care
     Dates: start: 20250313, end: 20250313
  4. ULSTOP F.C. TABLETS 20MG ^C.H.^ (FAMOTIDINE) [Concomitant]
     Indication: Peptic ulcer
     Dosage: 20MG/ONCE EVERY 0.5 DAYS
     Route: 048
     Dates: start: 20250307, end: 20250313
  5. ACTEIN GRANULES 66.7MG/GM [Concomitant]
     Indication: Productive cough
     Dosage: 3G /ONCE EVERY 0.5 DAYS
     Route: 048
     Dates: start: 20250303, end: 20250313
  6. EMEND CAPSULES 125MG(APREPITANT) [Concomitant]
     Indication: Antiemetic supportive care
     Route: 048
     Dates: start: 20250313, end: 20250313
  7. DECAN INJECTION ^YUNG SHIN^ (dexamthasone) [Concomitant]
     Indication: Antiemetic supportive care
     Dates: start: 20250313, end: 20250313
  8. SODIUM CHLORIDE [Concomitant]
     Active Substance: SODIUM CHLORIDE
     Indication: Product used for unknown indication
  9. CISPLATIN [Concomitant]
     Active Substance: CISPLATIN
     Indication: Lip and/or oral cavity cancer
     Route: 041
     Dates: start: 20250221
  10. CISPLATIN [Concomitant]
     Active Substance: CISPLATIN
     Dates: start: 2021

REACTIONS (9)
  - Syncope [Fatal]
  - Cyanosis [Fatal]
  - Dyspnoea [Fatal]
  - Pallor [Fatal]
  - Altered state of consciousness [Fatal]
  - Unresponsive to stimuli [Fatal]
  - Pulseless electrical activity [Fatal]
  - Cardiac arrest [Fatal]
  - Ventricular fibrillation [Fatal]

NARRATIVE: CASE EVENT DATE: 20250313
